FAERS Safety Report 5831335-3 (Version None)
Quarter: 2008Q3

REPORT INFORMATION
  Report Type: 
  Country: None (occurrence: None)
  Receive Date: 20080801
  Receipt Date: 20080417
  Transmission Date: 20090109
  Serious: No
  Sender: FDA-Public Use
  Company Number: US-BOEHRINGER INGELHEIM GMBH, GERMANY-2007-BP-16492BP

PATIENT
  Sex: Male
  Weight: 86 kg

DRUGS (14)
  1. MIRAPEX [Suspect]
     Indication: RESTLESS LEGS SYNDROME
     Dosage: 0.1125 MG TWICE DAILY UP TO 0.375 MG TWICE DAILY
     Dates: start: 19991126, end: 20060501
  2. CARBIDOPA + LEVODOPA [Concomitant]
     Dosage: 25/100
     Dates: start: 20001222, end: 20011223
  3. FLUOXETINE [Concomitant]
     Dosage: 20 MG
     Dates: start: 20001221, end: 20011222
  4. ALBUTEROL [Concomitant]
     Dates: start: 20001004, end: 20011005
  5. NAPROXEN [Concomitant]
     Dosage: 500 MG
     Dates: start: 20001004, end: 20011005
  6. CLONAZEPAM [Concomitant]
     Dosage: 0.5 MG
     Dates: start: 20001222, end: 20010624
  7. SIMVASTATIN [Concomitant]
     Dosage: 20 MG
     Dates: start: 20000426, end: 20010427
  8. MIRTAZAPINE [Concomitant]
     Dosage: 15 MG
     Dates: start: 19991228, end: 20001228
  9. TRIAMCINOLONE [Concomitant]
     Dates: start: 20001011, end: 20001110
  10. GUAIFENESIN WITH CODEINE [Concomitant]
  11. GUAIFENESIN [Concomitant]
     Dosage: 100 MG/ 5 ML
     Dates: start: 20001004, end: 20001103
  12. ACETAMINOPHEN [Concomitant]
     Dosage: 325
     Dates: start: 20001004, end: 20001103
  13. COTRIM DS [Concomitant]
     Dosage: 800/160
     Dates: start: 20001004, end: 20001011
  14. SERTRALINE [Concomitant]
     Dosage: 100 MG
     Dates: start: 19990715, end: 20000715

REACTIONS (5)
  - ALCOHOL ABUSE [None]
  - DEPRESSION [None]
  - EMOTIONAL DISTRESS [None]
  - OBSESSIVE-COMPULSIVE DISORDER [None]
  - PATHOLOGICAL GAMBLING [None]
